FAERS Safety Report 9315920 (Version 2)
Quarter: 2013Q3

REPORT INFORMATION
  Report Type: Spontaneous
  Country: US (occurrence: US)
  Receive Date: 20130530
  Receipt Date: 20130704
  Transmission Date: 20140515
  Serious: No
  Sender: FDA-Public Use
  Company Number: US-B.I. PHARMACEUTICALS,INC./RIDGEFIELD-2013-BI-14968BP

PATIENT
  Sex: Male
  Weight: 104 kg

DRUGS (6)
  1. COMBIVENT [Suspect]
     Indication: EMPHYSEMA
     Dosage: STRENGTH: 20 MCG / 100 MCG; DAILY DOSE: 80 MCG/400 MCG
     Route: 055
     Dates: start: 201304
  2. COMBIVENT [Suspect]
     Indication: EMPHYSEMA
     Dosage: STRENGTH: 18 MCG / 103 MCG; DAILY DOSE: 216 MCG/1236 MCG
     Route: 055
     Dates: start: 199610, end: 20130424
  3. COMBIVENT [Suspect]
     Indication: HYPOXIA
     Dosage: STRENGTH: 18 MCG / 103 MCG;
     Route: 055
     Dates: start: 201304
  4. COMBIVENT [Suspect]
     Indication: HYPOVENTILATION
     Dosage: DOSE: 18MCG/103MCG
     Route: 055
     Dates: start: 20100915, end: 20130424
  5. COMBIVENT [Suspect]
     Indication: EMPHYSEMA
     Dosage: STRENGTH:18 MCG/ 103 MCG
     Dates: start: 199610, end: 201304
  6. COMBIVENT [Suspect]
     Dosage: STRENGTH:20 MCG/ 100 MCG
     Dates: start: 201304

REACTIONS (5)
  - Dyspnoea exertional [Not Recovered/Not Resolved]
  - Dyspnoea [Not Recovered/Not Resolved]
  - Drug effect decreased [Not Recovered/Not Resolved]
  - Overdose [Not Recovered/Not Resolved]
  - Dyspnoea [Unknown]
